FAERS Safety Report 7186483-5 (Version None)
Quarter: 2010Q4

REPORT INFORMATION
  Report Type: 
  Country: None (occurrence: None)
  Receive Date: 20101222
  Receipt Date: 20101207
  Transmission Date: 20110411
  Serious: No
  Sender: FDA-Public Use
  Company Number: US-PFIZER INC-2010166562

PATIENT
  Sex: Female
  Weight: 54 kg

DRUGS (4)
  1. ZOLOFT [Suspect]
  2. ESTRADIOL [Suspect]
  3. PROGESTERONE [Suspect]
     Indication: MENOPAUSE
     Dosage: UNK
     Dates: end: 20100101
  4. ATIVAN [Concomitant]
     Indication: SLEEP DISORDER
     Dosage: UNK MG, 1X/DAY
     Route: 048

REACTIONS (3)
  - DIZZINESS [None]
  - DRUG EFFECT PROLONGED [None]
  - NAUSEA [None]
